FAERS Safety Report 19135673 (Version 1)
Quarter: 2021Q2

REPORT INFORMATION
  Report Type: Spontaneous
  Country: US (occurrence: US)
  Receive Date: 20210414
  Receipt Date: 20210414
  Transmission Date: 20210717
  Serious: No
  Sender: FDA-Public Use
  Company Number: US-GW PHARMA-202104USGW01551

PATIENT

DRUGS (2)
  1. EPIDIOLEX [Suspect]
     Active Substance: CANNABIDIOL
     Indication: PRODUCT USED FOR UNKNOWN INDICATION
     Dosage: 14.08 MG/KG/DAY, 150 MILLIGRAM, BID
     Route: 048
     Dates: start: 20181219
  2. EPIDIOLEX [Suspect]
     Active Substance: CANNABIDIOL
     Dosage: 18.77 MG/KG/DAY, 200 MILLIGRAM, BID  (INCREASED DOSE)
     Route: 048

REACTIONS (1)
  - Asthenia [Unknown]
